FAERS Safety Report 7534528-2 (Version None)
Quarter: 2011Q2

REPORT INFORMATION
  Report Type: 
  Country: None (occurrence: None)
  Receive Date: 20110609
  Receipt Date: 20091014
  Transmission Date: 20111010
  Serious: Yes (Life-Threatening, Hospitalization)
  Sender: FDA-Public Use
  Company Number: PHHY2009JP06795

PATIENT
  Sex: Female

DRUGS (8)
  1. VENA [Concomitant]
     Dosage: 30 MG
     Route: 048
     Dates: start: 20070618, end: 20070806
  2. HERCEPTIN [Concomitant]
     Dosage: 160 MG
     Route: 042
     Dates: start: 20070618, end: 20070806
  3. DECADRON [Concomitant]
     Dosage: 20 MG
     Route: 042
     Dates: start: 20070618, end: 20070806
  4. ZOMETA [Suspect]
     Indication: BREAST CANCER
     Dosage: 4 MG, ONCE/SINGLE
     Route: 042
     Dates: start: 20070723, end: 20070723
  5. TAXOL [Concomitant]
     Dosage: 150 MG
     Route: 042
     Dates: start: 20070618, end: 20070806
  6. ZANTAC [Concomitant]
     Dosage: 50 MG
     Route: 042
     Dates: start: 20070618, end: 20070806
  7. VOLTAREN [Concomitant]
     Dosage: 25 MG
     Route: 054
     Dates: start: 20070501, end: 20070816
  8. OXYCONTIN [Concomitant]
     Dosage: 120 MG
     Route: 048
     Dates: start: 20070521, end: 20070829

REACTIONS (2)
  - CHEST WALL NECROSIS [None]
  - GENERAL PHYSICAL HEALTH DETERIORATION [None]
